FAERS Safety Report 20240633 (Version 1)
Quarter: 2021Q4

REPORT INFORMATION
  Report Type: Spontaneous
  Country: US (occurrence: None)
  Receive Date: 20211228
  Receipt Date: 20211228
  Transmission Date: 20220303
  Serious: Yes (Death, Life-Threatening, Hospitalization, Other)
  Sender: FDA-Public Use
  Company Number: None

PATIENT
  Age: 25 Year
  Sex: Male
  Weight: 90.5 kg

DRUGS (7)
  1. BARICITINIB [Suspect]
     Active Substance: BARICITINIB
     Indication: COVID-19
     Dosage: FREQUENCY : DAILY;?
     Route: 048
     Dates: start: 20211212, end: 20211217
  2. dexamethasone 6mg IV daily [Concomitant]
     Dates: start: 20211215, end: 20211219
  3. enoxaparin 40mg sq daily [Concomitant]
     Dates: start: 20211215, end: 20211217
  4. enoxaparin 90mg sq bid [Concomitant]
     Dates: start: 20211217, end: 20211220
  5. famotidine 20mg IVP q12h [Concomitant]
     Dates: start: 20211215, end: 20211217
  6. fentanyl infusion 150-200mcg/hr [Concomitant]
     Dates: start: 20211215, end: 20211224
  7. propofol IV titrated to sedation level [Concomitant]
     Dates: start: 20211215, end: 20211224

REACTIONS (3)
  - Thrombocytopenia [None]
  - Deep vein thrombosis [None]
  - Respiratory failure [None]

NARRATIVE: CASE EVENT DATE: 20211217
